FAERS Safety Report 4540338-0 (Version None)
Quarter: 2004Q4

REPORT INFORMATION
  Report Type: 
  Country: None (occurrence: None)
  Receive Date: 20041223
  Receipt Date: 20041214
  Transmission Date: 20050328
  Serious: Yes (Hospitalization)
  Sender: FDA-Public Use
  Company Number: TPA2004A01547

PATIENT
  Age: 58 Year
  Sex: Male
  Weight: 133.8111 kg

DRUGS (2)
  1. ACTOS [Suspect]
     Indication: DIABETES MELLITUS NON-INSULIN-DEPENDENT
     Dosage: 15 MG, 1 IN 1 D, PER ORAL
     Route: 048
     Dates: start: 20000101
  2. AMARYL (GLIMEPIRIDE) (4 MILLIGRAM) [Concomitant]

REACTIONS (3)
  - COELIAC DISEASE [None]
  - CORONARY ARTERY OCCLUSION [None]
  - PNEUMONIA [None]
